FAERS Safety Report 10801272 (Version 1)
Quarter: 2015Q1

REPORT INFORMATION
  Report Type: Spontaneous
  Country: US (occurrence: US)
  Receive Date: 20150217
  Receipt Date: 20150217
  Transmission Date: 20150721
  Serious: Yes (Life-Threatening, Other)
  Sender: FDA-Public Use
  Company Number: PHHY2015US017294

PATIENT
  Weight: 5.5 kg

DRUGS (1)
  1. METHADONE [Suspect]
     Active Substance: METHADONE HYDROCHLORIDE
     Indication: PAIN MANAGEMENT
     Dosage: 3 MG, UNK
     Route: 065

REACTIONS (4)
  - Respiratory depression [Recovered/Resolved]
  - Oxygen saturation decreased [Recovered/Resolved]
  - Apnoea [Recovered/Resolved]
  - Incorrect dose administered [Unknown]
